FAERS Safety Report 6292210-6 (Version None)
Quarter: 2009Q3

REPORT INFORMATION
  Report Type: 
  Country: None (occurrence: None)
  Receive Date: 20090731
  Receipt Date: 20090720
  Transmission Date: 20100115
  Serious: Yes (Other)
  Sender: FDA-Public Use
  Company Number: HU-RANBAXY-2009RR-25364

PATIENT
  Age: 35 Year
  Sex: Female

DRUGS (1)
  1. SOTRET [Suspect]
     Dosage: 10 MG, BID
     Route: 048
     Dates: start: 20090403, end: 20090505

REACTIONS (1)
  - DRUG EXPOSURE DURING PREGNANCY [None]
